FAERS Safety Report 12671182 (Version 3)
Quarter: 2017Q2

REPORT INFORMATION
  Report Type: Spontaneous
  Country: US (occurrence: US)
  Receive Date: 20160822
  Receipt Date: 20170616
  Transmission Date: 20170830
  Serious: Yes (Hospitalization, Other)
  Sender: FDA-Public Use
  Company Number: US-AUROBINDO-AUR-APL-2016-10490

PATIENT

DRUGS (4)
  1. OLANZAPINE 10MG [Suspect]
     Active Substance: OLANZAPINE
     Indication: PROPHYLAXIS OF NAUSEA AND VOMITING
     Dosage: 10 MG, DAILY
     Route: 048
  2. LORAZEPAM. [Interacting]
     Active Substance: LORAZEPAM
     Indication: ANXIETY
     Dosage: 1 MG
     Route: 042
  3. FOLFOX [Concomitant]
     Active Substance: FLUOROURACIL\LEUCOVORIN CALCIUM\OXALIPLATIN
     Indication: PANCREATIC CARCINOMA
     Dosage: OXALIPLATIN 60 MG/M2 IV OVER 2 HOURS, 5-FU 2000 MG/M2 IV OVER 46 HOURS
     Route: 065
  4. LORAZEPAM. [Interacting]
     Active Substance: LORAZEPAM
     Indication: NAUSEA
     Dosage: 1 MG, 2-3 TIMES
     Route: 048

REACTIONS (8)
  - Respiratory depression [Recovered/Resolved]
  - Haemoglobin decreased [Recovered/Resolved]
  - Delirium [Recovered/Resolved]
  - Off label use [Recovered/Resolved]
  - Unresponsive to stimuli [Recovered/Resolved]
  - Drug interaction [Recovered/Resolved]
  - Hypotension [Recovered/Resolved]
  - Toxicity to various agents [Recovered/Resolved]
